FAERS Safety Report 22083130 (Version 1)
Quarter: 2023Q1

REPORT INFORMATION
  Report Type: Other
  Country: IN (occurrence: None)
  Receive Date: 20230310
  Receipt Date: 20230310
  Transmission Date: 20230417
  Serious: Yes (Death)
  Sender: FDA-Public Use
  Company Number: IN-ROCHE-3302909

PATIENT
  Age: 63 Year
  Sex: Male

DRUGS (1)
  1. TECENTRIQ [Suspect]
     Active Substance: ATEZOLIZUMAB
     Indication: Hepatocellular carcinoma
     Route: 042
     Dates: start: 20220721

REACTIONS (8)
  - Pulmonary sepsis [Fatal]
  - Shock [Fatal]
  - Acute kidney injury [Fatal]
  - Hepatic encephalopathy [Fatal]
  - Hypoglycaemia [Fatal]
  - Hyponatraemia [Fatal]
  - Chronic hepatitis B [Fatal]
  - Hepatocellular carcinoma [Fatal]

NARRATIVE: CASE EVENT DATE: 20221221
